FAERS Safety Report 5927543-3 (Version None)
Quarter: 2008Q4

REPORT INFORMATION
  Report Type: 
  Country: None (occurrence: None)
  Receive Date: 20081020
  Receipt Date: 20081006
  Transmission Date: 20090506
  Serious: Yes (Hospitalization)
  Sender: FDA-Public Use
  Company Number: 2008BI026433

PATIENT
  Age: 35 Year
  Sex: Female

DRUGS (1)
  1. TYSABRI [Suspect]
     Indication: MULTIPLE SCLEROSIS
     Dosage: 300 MG;QM;IV
     Route: 042
     Dates: start: 20080318

REACTIONS (8)
  - BACTERIAL SEPSIS [None]
  - CONDITION AGGRAVATED [None]
  - DEHYDRATION [None]
  - EATING DISORDER [None]
  - GAIT DISTURBANCE [None]
  - HYPOAESTHESIA [None]
  - PROCEDURAL HEADACHE [None]
  - PYELONEPHRITIS [None]
